FAERS Safety Report 5662807-2 (Version None)
Quarter: 2008Q1

REPORT INFORMATION
  Report Type: 
  Country: None (occurrence: None)
  Receive Date: 20080313
  Receipt Date: 20080305
  Transmission Date: 20080703
  Serious: Yes (Disabling)
  Sender: FDA-Public Use
  Company Number: JP-GENENTECH-252836

PATIENT
  Sex: Female
  Weight: 47 kg

DRUGS (9)
  1. RITUXAN [Suspect]
     Indication: NON-HODGKIN'S LYMPHOMA
     Dosage: 375 MG/M2, QD
     Route: 041
     Dates: start: 20071120
  2. METHOTREXATE [Concomitant]
     Indication: NON-HODGKIN'S LYMPHOMA
     Dosage: 2800 MG, UNK
     Dates: start: 20071120
  3. PREDNISOLONE [Concomitant]
     Indication: NON-HODGKIN'S LYMPHOMA
     Dates: start: 20071120
  4. MEQUITAZINE [Concomitant]
     Indication: PRURITUS
     Dosage: UNK, UNK
     Route: 048
     Dates: start: 20071120
  5. MEQUITAZINE [Concomitant]
     Indication: URTICARIA
  6. HYDROCORTISONE [Concomitant]
     Indication: PRURITUS
     Route: 042
     Dates: start: 20071120
  7. HYDROCORTISONE [Concomitant]
     Indication: URTICARIA
  8. SODIUM CHLORIDE [Concomitant]
     Indication: PRURITUS
     Dates: start: 20071120
  9. SODIUM CHLORIDE [Concomitant]
     Indication: URTICARIA

REACTIONS (1)
  - ALTERED STATE OF CONSCIOUSNESS [None]
